FAERS Safety Report 21763704 (Version 1)
Quarter: 2022Q4

REPORT INFORMATION
  Report Type: Spontaneous
  Country: US (occurrence: US)
  Receive Date: 20221222
  Receipt Date: 20221222
  Transmission Date: 20230113
  Serious: Yes (Other)
  Sender: FDA-Public Use
  Company Number: US-BRISTOL-MYERS SQUIBB COMPANY-2022-155575

PATIENT
  Age: 80 Year
  Sex: Female

DRUGS (1)
  1. APIXABAN [Suspect]
     Active Substance: APIXABAN
     Indication: Product used for unknown indication
     Route: 048

REACTIONS (4)
  - Ecchymosis [Unknown]
  - Petechiae [Unknown]
  - Haemorrhage intracranial [Unknown]
  - Subarachnoid haemorrhage [Unknown]
